FAERS Safety Report 9675603 (Version 2)
Quarter: 2013Q4

REPORT INFORMATION
  Report Type: Spontaneous
  Country: US (occurrence: US)
  Receive Date: 20131107
  Receipt Date: 20131127
  Transmission Date: 20140711
  Serious: Yes (Hospitalization)
  Sender: FDA-Public Use
  Company Number: US-ASTRAZENECA-2013SE80522

PATIENT
  Sex: 0

DRUGS (3)
  1. BRILINTA [Suspect]
     Route: 048
  2. ASPIRIN [Concomitant]
  3. WARFARIN [Concomitant]

REACTIONS (1)
  - Haemorrhage intracranial [Unknown]
